FAERS Safety Report 21408299 (Version 1)
Quarter: 2022Q4

REPORT INFORMATION
  Report Type: Spontaneous
  Country: KR (occurrence: KR)
  Receive Date: 20221004
  Receipt Date: 20221004
  Transmission Date: 20230113
  Serious: Yes (Hospitalization, Other)
  Sender: FDA-Public Use
  Company Number: KR-002147023-NVSC2022KR220217

PATIENT

DRUGS (4)
  1. RUXOLITINIB [Suspect]
     Active Substance: RUXOLITINIB
     Indication: Myelofibrosis
     Dosage: 20 MG, BID
     Route: 065
     Dates: start: 2016
  2. RUXOLITINIB [Suspect]
     Active Substance: RUXOLITINIB
     Dosage: 5 MG, BID
     Route: 065
  3. RUXOLITINIB [Suspect]
     Active Substance: RUXOLITINIB
     Dosage: UNK
     Route: 065
     Dates: end: 202005
  4. RUXOLITINIB [Suspect]
     Active Substance: RUXOLITINIB
     Dosage: 20 MG, QD
     Route: 065

REACTIONS (11)
  - Acute myocardial infarction [Unknown]
  - Pneumonia fungal [Unknown]
  - Haemoglobin abnormal [Unknown]
  - Hepatitis B reactivation [Unknown]
  - Drug withdrawal syndrome [Unknown]
  - Pneumonia [Unknown]
  - Loss of therapeutic response [Unknown]
  - Pneumocystis jirovecii pneumonia [Unknown]
  - Inappropriate schedule of product administration [Unknown]
  - Urinary tract infection [Unknown]
  - White blood cell disorder [Unknown]

NARRATIVE: CASE EVENT DATE: 20180101
